FAERS Safety Report 4778072-4 (Version None)
Quarter: 2005Q3

REPORT INFORMATION
  Report Type: 
  Country: None (occurrence: None)
  Receive Date: 20050926
  Receipt Date: 20050916
  Transmission Date: 20060218
  Serious: Yes (Other)
  Sender: FDA-Public Use
  Company Number: 200512680JP

PATIENT
  Age: 72 Year
  Sex: Male

DRUGS (1)
  1. LASIX [Suspect]
     Route: 041

REACTIONS (1)
  - HEPATITIS C [None]
